FAERS Safety Report 24267502 (Version 1)
Quarter: 2024Q3

REPORT INFORMATION
  Report Type: Spontaneous
  Country: US (occurrence: US)
  Receive Date: 20240830
  Receipt Date: 20240830
  Transmission Date: 20241017
  Serious: No
  Sender: MERCK
  Company Number: US-009507513-2408USA006855

PATIENT
  Age: 69 Year
  Sex: Male

DRUGS (8)
  1. PRIMAXIN IV [Suspect]
     Active Substance: CILASTATIN SODIUM\IMIPENEM
     Indication: Mycobacterium abscessus infection
     Dosage: 1000 MILLIGRAM, BID
     Dates: start: 20240723
  2. NUZYRA [Suspect]
     Active Substance: OMADACYCLINE
     Indication: Mycobacterial infection
     Dosage: 300 MILLIGRAM, QD
     Route: 048
     Dates: start: 20240724, end: 20240725
  3. NUZYRA [Suspect]
     Active Substance: OMADACYCLINE
     Dosage: 150 MILLIGRAM, BID
     Route: 048
     Dates: start: 20240726
  4. AMIKACIN [Suspect]
     Active Substance: AMIKACIN
     Indication: Mycobacterial infection
     Dosage: UNK
     Dates: start: 20240723
  5. LINEZOLID [Concomitant]
     Active Substance: LINEZOLID
     Dosage: UNK, QD
     Route: 048
     Dates: start: 20240723
  6. CRESTOR [Concomitant]
     Active Substance: ROSUVASTATIN CALCIUM
     Dosage: UNK
  7. CELEXA [Concomitant]
     Active Substance: CITALOPRAM HYDROBROMIDE
     Dosage: UNK
  8. VITAMINS NOS [Concomitant]
     Active Substance: VITAMINS
     Dosage: UNK

REACTIONS (6)
  - Illness [Unknown]
  - Vomiting [Not Recovered/Not Resolved]
  - Nausea [Not Recovered/Not Resolved]
  - Hot flush [Not Recovered/Not Resolved]
  - Skin warm [Not Recovered/Not Resolved]
  - Off label use [Unknown]

NARRATIVE: CASE EVENT DATE: 20240723
